FAERS Safety Report 5521681-5 (Version None)
Quarter: 2007Q4

REPORT INFORMATION
  Report Type: 
  Country: None (occurrence: None)
  Receive Date: 20071120
  Receipt Date: 20071113
  Transmission Date: 20080405
  Serious: Yes (Other)
  Sender: FDA-Public Use
  Company Number: PHFR2007GB03340

PATIENT
  Age: 37 Year
  Sex: Female
  Weight: 64 kg

DRUGS (3)
  1. TRIMETHOPRIM [Suspect]
     Indication: URINARY TRACT INFECTION
     Dosage: 200 MG, BID
     Route: 048
     Dates: start: 20071022, end: 20071023
  2. MICROGYNON [Concomitant]
     Indication: CONTRACEPTION
     Dosage: 30 (NO UNITS)
     Route: 048
     Dates: start: 19990505
  3. DICLOFENAC SODIUM [Suspect]
     Indication: ABDOMINAL PAIN
     Dosage: 50 MG, TID
     Route: 048
     Dates: start: 20071022, end: 20071023

REACTIONS (5)
  - CHEST DISCOMFORT [None]
  - DIZZINESS [None]
  - SWELLING FACE [None]
  - TREMOR [None]
  - WHEEZING [None]
